FAERS Safety Report 12435481 (Version 1)
Quarter: 2016Q2

REPORT INFORMATION
  Report Type: Spontaneous
  Country: US (occurrence: US)
  Receive Date: 20160603
  Receipt Date: 20160603
  Transmission Date: 20160815
  Serious: No
  Sender: FDA-Public Use
  Company Number: US-ROCHE-1584582

PATIENT
  Age: 55 Year
  Sex: Male

DRUGS (3)
  1. XELODA [Suspect]
     Active Substance: CAPECITABINE
     Dosage: RESTART DATE
     Route: 065
     Dates: start: 201310, end: 201403
  2. CAPECITABINE. [Suspect]
     Active Substance: CAPECITABINE
     Indication: COLORECTAL CANCER
     Route: 065
     Dates: start: 201412
  3. XELODA [Suspect]
     Active Substance: CAPECITABINE
     Indication: COLORECTAL CANCER
     Route: 065
     Dates: start: 201304, end: 201305

REACTIONS (4)
  - Blister [Unknown]
  - Feeling hot [Unknown]
  - Diarrhoea [Not Recovered/Not Resolved]
  - Recurrent cancer [Unknown]

NARRATIVE: CASE EVENT DATE: 201412
